FAERS Safety Report 9743531 (Version 1)
Quarter: 2013Q4

REPORT INFORMATION
  Report Type: Spontaneous
  Country: DE (occurrence: DE)
  Receive Date: 20131210
  Receipt Date: 20131210
  Transmission Date: 20140711
  Serious: Yes (Other)
  Sender: FDA-Public Use
  Company Number: DE-TEVA-449037GER

PATIENT
  Age: 37 Year
  Sex: Female
  Weight: 60 kg

DRUGS (6)
  1. DIAZEPAM [Suspect]
     Indication: PSYCHOTIC DISORDER
     Dosage: 15 MILLIGRAM DAILY;
     Route: 048
  2. SEROQUEL [Suspect]
     Indication: PSYCHOTIC DISORDER
     Dosage: 800 MILLIGRAM DAILY;
     Route: 048
  3. HALDOL [Suspect]
     Indication: PSYCHOTIC DISORDER
     Dosage: 6 MILLIGRAM DAILY; 6 MG DAILY (3MG-0-3MG)
     Route: 048
  4. AKINETON [Suspect]
     Indication: PSYCHOTIC DISORDER
     Dosage: 4 MILLIGRAM DAILY;
     Route: 048
  5. CITALOPRAM [Concomitant]
     Indication: DEPRESSION
     Route: 048
  6. ABILIFY [Concomitant]
     Indication: DEPRESSION
     Route: 048

REACTIONS (1)
  - Polyhydramnios [Recovered/Resolved]
